FAERS Safety Report 22970085 (Version 4)
Quarter: 2023Q4

REPORT INFORMATION
  Report Type: Spontaneous
  Country: US (occurrence: None)
  Receive Date: 20230922
  Receipt Date: 20231025
  Transmission Date: 20240109
  Serious: Yes (Hospitalization, Other)
  Sender: FDA-Public Use
  Company Number: US-ROCHE-3422009

PATIENT
  Age: 59 Year
  Sex: Female

DRUGS (3)
  1. OCREVUS [Suspect]
     Active Substance: OCRELIZUMAB
     Indication: Relapsing multiple sclerosis
     Dosage: LAST INFUSION WAS IN AUGUST 2022
     Route: 065
     Dates: start: 20171011
  2. OCREVUS [Suspect]
     Active Substance: OCRELIZUMAB
     Indication: Secondary progressive multiple sclerosis
  3. RITUXAN [Suspect]
     Active Substance: RITUXIMAB
     Indication: Multiple sclerosis
     Route: 065

REACTIONS (11)
  - Rasmussen encephalitis [Unknown]
  - Speech disorder [Unknown]
  - Cerebrovascular accident [Unknown]
  - Urinary tract infection [Unknown]
  - Dysphonia [Unknown]
  - Bladder disorder [Unknown]
  - Memory impairment [Unknown]
  - Fatigue [Unknown]
  - Nausea [Unknown]
  - Temperature intolerance [Unknown]
  - Off label use [Unknown]
